FAERS Safety Report 15635218 (Version 1)
Quarter: 2018Q4

REPORT INFORMATION
  Report Type: Spontaneous
  Country: US (occurrence: US)
  Receive Date: 20181120
  Receipt Date: 20181120
  Transmission Date: 20190205
  Serious: Yes (Other)
  Sender: FDA-Public Use
  Company Number: US-INSYS THERAPEUTICS, INC-INS201811-000423

PATIENT
  Sex: Male

DRUGS (7)
  1. OXYCODONE [Suspect]
     Active Substance: OXYCODONE
     Dates: start: 2001, end: 201610
  2. FENTANYL. [Suspect]
     Active Substance: FENTANYL
     Dates: start: 2001, end: 201610
  3. HYDROCODONE [Suspect]
     Active Substance: HYDROCODONE
     Dates: start: 2001, end: 201610
  4. FENTANYL TROCHES [Suspect]
     Active Substance: FENTANYL
  5. EVZIO [Suspect]
     Active Substance: NALOXONE HYDROCHLORIDE
  6. SUBSYS [Suspect]
     Active Substance: FENTANYL
     Indication: PAIN
     Route: 060
     Dates: start: 2012, end: 201610
  7. FENTANYL TRANSDERMAL SYSTEM [Suspect]
     Active Substance: FENTANYL

REACTIONS (3)
  - Drug dependence [Unknown]
  - Injury [Unknown]
  - Adverse reaction [Unknown]
